FAERS Safety Report 17363276 (Version 2)
Quarter: 2020Q3

REPORT INFORMATION
  Report Type: Not Available
  Country: US (occurrence: US)
  Receive Date: 20200203
  Receipt Date: 20200709
  Transmission Date: 20201102
  Serious: No
  Sender: FDA-Public Use
  Company Number: US-NEUROCRINE BIOSCIENCES INC.-2020NBI00238

PATIENT
  Age: 85 Year
  Sex: Female

DRUGS (2)
  1. INGREZZA [Suspect]
     Active Substance: VALBENAZINE
     Indication: TARDIVE DYSKINESIA
     Route: 048
  2. INGREZZA [Suspect]
     Active Substance: VALBENAZINE
     Route: 048
     Dates: start: 20191021

REACTIONS (5)
  - Somnolence [Unknown]
  - Drug ineffective [Unknown]
  - Dermatillomania [Unknown]
  - Therapeutic product effect decreased [Unknown]
  - Fatigue [Unknown]
